FAERS Safety Report 13959610 (Version 1)
Quarter: 2017Q3

REPORT INFORMATION
  Report Type: Spontaneous
  Country: US (occurrence: US)
  Receive Date: 20170912
  Receipt Date: 20170912
  Transmission Date: 20171128
  Serious: No
  Sender: FDA-Public Use
  Company Number: None

PATIENT
  Age: 44 Year
  Sex: Female

DRUGS (2)
  1. EOS ACTIVE PROTECTION FRESH GRAPEFRUIT SUNSCREEN LIP BALM BROAD SPECTRUM SPF 30 [Suspect]
     Active Substance: AVOBENZONE\HOMOSALATE\OCTOCRYLENE
     Route: 061
     Dates: start: 20170906, end: 20170908
  2. WELLBUTRIN [Concomitant]
     Active Substance: BUPROPION HYDROCHLORIDE

REACTIONS (2)
  - Lip swelling [None]
  - Aphthous ulcer [None]

NARRATIVE: CASE EVENT DATE: 20170908
